FAERS Safety Report 11814660 (Version 1)
Quarter: 2015Q4

REPORT INFORMATION
  Report Type: Spontaneous
  Country: CA (occurrence: None)
  Receive Date: 20151208
  Receipt Date: 20151208
  Transmission Date: 20160305
  Serious: Yes (Other)
  Sender: FDA-Public Use
  Company Number: None

PATIENT
  Age: 20 Year
  Sex: Male
  Weight: 83.92 kg

DRUGS (3)
  1. VITAMIN D [Concomitant]
     Active Substance: CHOLECALCIFEROL
  2. FLUOXETINE [Suspect]
     Active Substance: FLUOXETINE HYDROCHLORIDE
     Indication: MAJOR DEPRESSION
     Dosage: 1 PILL
     Route: 048
     Dates: start: 201102
  3. PERPHENAZINE (TRIALAFON) [Concomitant]

REACTIONS (7)
  - Constipation [None]
  - Paraesthesia [None]
  - Suicidal ideation [None]
  - Pruritus [None]
  - Arthralgia [None]
  - Salivary hypersecretion [None]
  - Weight increased [None]

NARRATIVE: CASE EVENT DATE: 201102
